FAERS Safety Report 21601201 (Version 6)
Quarter: 2024Q4

REPORT INFORMATION
  Report Type: Report from Study
  Country: DE (occurrence: DE)
  Receive Date: 20221116
  Receipt Date: 20241001
  Transmission Date: 20250115
  Serious: No
  Sender: ROCHE
  Company Number: DE-ROCHE-2330016

PATIENT
  Age: 65 Year
  Sex: Male
  Weight: 93 kg

DRUGS (7)
  1. OCREVUS [Suspect]
     Active Substance: OCRELIZUMAB
     Indication: Primary progressive multiple sclerosis
     Dosage: NEXT DOSE: 07/JUL/2021, 14/JUL/2022 + 21/JUL/2022, 300 MG I.V. EACH TIME
     Route: 042
     Dates: start: 20180515
  2. FENEBRUTINIB [Suspect]
     Active Substance: FENEBRUTINIB
     Indication: Primary progressive multiple sclerosis
     Dosage: START DATE :- 29-JUN-2022
     Route: 048
  3. COMIRNATY (TOZINAMERAN) [Suspect]
     Active Substance: TOZINAMERAN
     Indication: COVID-19 immunisation
     Dosage: START DATE:- 14-APR-2021?COVID 19 VACCINATION
     Route: 065
  4. COMIRNATY (TOZINAMERAN) [Suspect]
     Active Substance: TOZINAMERAN
     Route: 065
     Dates: start: 20210526
  5. DALFAMPRIDINE [Concomitant]
     Active Substance: DALFAMPRIDINE
  6. BACLOFEN [Concomitant]
     Active Substance: BACLOFEN
  7. SIMVASTATIN [Concomitant]
     Active Substance: SIMVASTATIN

REACTIONS (7)
  - Drug ineffective [Unknown]
  - Fatigue [Recovered/Resolved]
  - Apathy [Recovered/Resolved]
  - Dizziness [Unknown]
  - Nausea [Unknown]
  - COVID-19 [Recovered/Resolved]
  - Gait disturbance [Recovering/Resolving]

NARRATIVE: CASE EVENT DATE: 20190425
